FAERS Safety Report 7722182 (Version 3)
Quarter: 2013Q3

REPORT INFORMATION
  Report Type: Spontaneous
  Country: US (occurrence: US)
  Receive Date: 20101220
  Receipt Date: 20130916
  Transmission Date: 20140515
  Serious: Yes (Hospitalization)
  Sender: FDA-Public Use
  Company Number: US-RANBAXY-2010US-40347

PATIENT
  Age: 20 Year
  Sex: Male

DRUGS (4)
  1. CEFTRIAXONE [Suspect]
     Indication: TENOSYNOVITIS
     Dosage: ONE DOSE
     Route: 065
  2. DOXYCYCLINE HYDROCHLORIDE [Suspect]
     Indication: TENOSYNOVITIS
     Dosage: UNK
     Route: 065
  3. VANCOMYCIN [Suspect]
     Indication: PROPHYLAXIS
     Dosage: ONE DOSE
     Route: 065
  4. SEPTRA [Suspect]
     Indication: PROPHYLAXIS
     Dosage: UNK
     Route: 065

REACTIONS (1)
  - Drug reaction with eosinophilia and systemic symptoms [Recovering/Resolving]
